FAERS Safety Report 24211102 (Version 1)
Quarter: 2024Q3

REPORT INFORMATION
  Report Type: Spontaneous
  Country: TW (occurrence: TW)
  Receive Date: 20240814
  Receipt Date: 20240814
  Transmission Date: 20241017
  Serious: Yes (Other)
  Sender: VIIV
  Company Number: TW-VIIV HEALTHCARE LIMITED-TW2024APC098995

PATIENT

DRUGS (2)
  1. DOVATO [Suspect]
     Active Substance: DOLUTEGRAVIR SODIUM\LAMIVUDINE
     Indication: HIV infection
     Dosage: UNK
     Dates: start: 2022
  2. TRIUMEQ [Concomitant]
     Active Substance: ABACAVIR SULFATE\DOLUTEGRAVIR SODIUM\LAMIVUDINE
     Indication: HIV infection
     Dosage: UNK
     Dates: start: 2019, end: 2022

REACTIONS (4)
  - Acute myeloid leukaemia [Unknown]
  - Hepatitis B reactivation [Unknown]
  - Treatment noncompliance [Unknown]
  - Blood HIV RNA increased [Unknown]
